FAERS Safety Report 26025221 (Version 1)
Quarter: 2025Q4

REPORT INFORMATION
  Report Type: Other
  Country: CA (occurrence: CA)
  Receive Date: 20251111
  Receipt Date: 20251111
  Transmission Date: 20260118
  Serious: Yes (Hospitalization)
  Sender: CELLTRION
  Company Number: CA-CELLTRION INC.-2025CA040303

PATIENT

DRUGS (1)
  1. RITUXIMAB [Suspect]
     Active Substance: RITUXIMAB
     Indication: Transplant rejection
     Route: 065

REACTIONS (4)
  - Pneumatosis intestinalis [Unknown]
  - Cytomegalovirus infection [Unknown]
  - Off label use [Unknown]
  - Intentional product use issue [Unknown]
